FAERS Safety Report 17596431 (Version 1)
Quarter: 2020Q1

REPORT INFORMATION
  Report Type: Spontaneous
  Country: US (occurrence: US)
  Receive Date: 20200330
  Receipt Date: 20200330
  Transmission Date: 20200409
  Serious: No
  Sender: FDA-Public Use
  Company Number: US-JNJFOC-20200336217

PATIENT
  Sex: Female
  Weight: 83.99 kg

DRUGS (1)
  1. TYLENOL [Suspect]
     Active Substance: ACETAMINOPHEN
     Indication: ARTHRALGIA
     Dosage: 2 CAPLETS 2 OR 3 TIMES A DAY?PRODUCT LAST DATE OF ADMIN: 23-MAR-2020
     Route: 048
     Dates: start: 2020

REACTIONS (1)
  - Therapeutic product effect delayed [Unknown]
